FAERS Safety Report 10413651 (Version 1)
Quarter: 2014Q2

REPORT INFORMATION
  Report Type: Spontaneous
  Country: US (occurrence: None)
  Receive Date: 20140604
  Receipt Date: 20140604
  Transmission Date: 20141212
  Serious: Yes (Hospitalization)
  Sender: FDA-Public Use
  Company Number: 20120918CINRY3392

PATIENT
  Age: 41 Year
  Sex: Female

DRUGS (2)
  1. CINRYZE [Suspect]
     Indication: PROPHYLAXIS
     Route: 042
  2. CINRYZE [Suspect]
     Route: 042

REACTIONS (2)
  - Hereditary angioedema [None]
  - Drug dose omission [None]
